FAERS Safety Report 15600074 (Version 2)
Quarter: 2018Q4

REPORT INFORMATION
  Report Type: Spontaneous
  Country: FR (occurrence: FR)
  Receive Date: 20181109
  Receipt Date: 20181212
  Transmission Date: 20190205
  Serious: Yes (Death, Other)
  Sender: FDA-Public Use
  Company Number: FR-AUROBINDO-AUR-APL-2018-053112

PATIENT
  Age: 77 Year
  Sex: Male
  Weight: 83.3 kg

DRUGS (18)
  1. FLUCONAZOLE ARROW [Suspect]
     Active Substance: FLUCONAZOLE
     Indication: PRODUCT USED FOR UNKNOWN INDICATION
     Dosage: 50 MILLIGRAM, DAILY
     Route: 048
     Dates: start: 20181001, end: 20181004
  2. METHOTREXATE MYLAN [Suspect]
     Active Substance: METHOTREXATE SODIUM
     Indication: B-CELL LYMPHOMA
     Dosage: IN TOTAL
     Route: 042
     Dates: start: 20180921, end: 20180921
  3. PERINDOPRIL [Concomitant]
     Active Substance: PERINDOPRIL
     Indication: PRODUCT USED FOR UNKNOWN INDICATION
     Dosage: 2 MILLIGRAM, DAILY
     Route: 065
     Dates: start: 20180820
  4. LEDERFOLINE [Concomitant]
     Active Substance: LEUCOVORIN CALCIUM
     Dosage: UNK
  5. TRUXIMA [Suspect]
     Active Substance: RITUXIMAB-ABBS
     Indication: B-CELL LYMPHOMA
     Dosage: IN TOTAL
     Route: 042
     Dates: start: 20180920, end: 20180920
  6. TRIMEBUTINE [Concomitant]
     Active Substance: TRIMEBUTINE
     Indication: PRODUCT USED FOR UNKNOWN INDICATION
     Dosage: 600 MILLIGRAM, DAILY
     Route: 065
     Dates: start: 20180820
  7. IMOVANE [Concomitant]
     Active Substance: ZOPICLONE
     Indication: PRODUCT USED FOR UNKNOWN INDICATION
     Dosage: 7.5 MILLIGRAM, DAILY
     Route: 065
     Dates: start: 20180820
  8. CORTANCYL [Concomitant]
     Active Substance: PREDNISONE
     Indication: PRODUCT USED FOR UNKNOWN INDICATION
     Dosage: UNK
     Route: 065
  9. ASPEGIC BABY [Concomitant]
     Active Substance: ASPIRIN DL-LYSINE\GLYCINE
     Indication: PRODUCT USED FOR UNKNOWN INDICATION
     Dosage: 250 MILLIGRAM, DAILY
     Route: 065
     Dates: start: 20180820
  10. DOLIPRANE [Concomitant]
     Active Substance: ACETAMINOPHEN
     Indication: PRODUCT USED FOR UNKNOWN INDICATION
     Dosage: 3000 MILLIGRAM, DAILY
     Route: 065
     Dates: start: 20180820
  11. VINCRISTINE HOSPIRA [Suspect]
     Active Substance: VINCRISTINE
     Indication: B-CELL LYMPHOMA
     Dosage: IN TOTAL
     Route: 042
     Dates: start: 20180921, end: 20180921
  12. NATULAN [Suspect]
     Active Substance: PROCARBAZINE HYDROCHLORIDE
     Indication: B-CELL LYMPHOMA
     Dosage: 192 MILLIGRAM, DAILY
     Route: 048
     Dates: start: 20180921, end: 20180927
  13. LERCANIDIPINE HCL [Concomitant]
     Active Substance: LERCANIDIPINE HYDROCHLORIDE
     Indication: PRODUCT USED FOR UNKNOWN INDICATION
     Dosage: 20 MILLIGRAM, DAILY
     Route: 065
     Dates: start: 20180820
  14. LEDERFOLINE [Concomitant]
     Active Substance: LEUCOVORIN CALCIUM
     Indication: PRODUCT USED FOR UNKNOWN INDICATION
     Dosage: UNK
     Route: 065
  15. MOVICOL [Concomitant]
     Active Substance: POLYETHYLENE GLYCOL 3350\POTASSIUM CHLORIDE\SODIUM BICARBONATE\SODIUM CHLORIDE
     Indication: PRODUCT USED FOR UNKNOWN INDICATION
     Dosage: 1 DOSAGE FORM, DAILY
     Route: 065
     Dates: start: 20180820
  16. FENOFIBRATE. [Concomitant]
     Active Substance: FENOFIBRATE
     Indication: PRODUCT USED FOR UNKNOWN INDICATION
     Dosage: 160 KILO-INTERNATIONAL UNIT, DAILY
     Route: 065
     Dates: start: 20180820
  17. CORTANCYL [Concomitant]
     Active Substance: PREDNISONE
     Dosage: UNK
     Route: 065
  18. INDAPAMIDE. [Concomitant]
     Active Substance: INDAPAMIDE
     Indication: PRODUCT USED FOR UNKNOWN INDICATION
     Dosage: 0.63 KILO-INTERNATIONAL UNIT, DAILY
     Route: 065
     Dates: start: 20180820

REACTIONS (3)
  - Acute kidney injury [Fatal]
  - Dehydration [Fatal]
  - Toxic epidermal necrolysis [Fatal]

NARRATIVE: CASE EVENT DATE: 20180923
